FAERS Safety Report 9637905 (Version 1)
Quarter: 2013Q4

REPORT INFORMATION
  Report Type: Spontaneous
  Country: IT (occurrence: IT)
  Receive Date: 20131022
  Receipt Date: 20131022
  Transmission Date: 20140711
  Serious: Yes (Other)
  Sender: FDA-Public Use
  Company Number: IT-ELI_LILLY_AND_COMPANY-IT201310003397

PATIENT
  Age: 61 Year
  Sex: Male

DRUGS (3)
  1. CYMBALTA [Suspect]
     Indication: NEURALGIA
     Dosage: 30 MG, QD
     Route: 048
     Dates: start: 20130223
  2. CYMBALTA [Suspect]
     Indication: NEURALGIA
  3. TAPENTADOL [Suspect]
     Indication: NEURALGIA
     Dosage: 100 MG, UNK
     Route: 048
     Dates: start: 20130226, end: 20130226

REACTIONS (6)
  - Respiratory disorder [Recovered/Resolved]
  - Hypotension [Recovered/Resolved]
  - Dyspnoea [Recovered/Resolved]
  - Hyperhidrosis [Recovered/Resolved]
  - Anxiety [Recovered/Resolved]
  - Myoclonus [Recovered/Resolved]
